FAERS Safety Report 23540748 (Version 1)
Quarter: 2024Q1

REPORT INFORMATION
  Report Type: Spontaneous
  Country: US (occurrence: US)
  Receive Date: 20240219
  Receipt Date: 20240219
  Transmission Date: 20240409
  Serious: No
  Sender: FDA-Public Use
  Company Number: US-Stemline Therapeutics, Inc.-2023ST005178

PATIENT
  Age: 64 Year
  Sex: Female

DRUGS (2)
  1. ORSERDU [Suspect]
     Active Substance: ELACESTRANT
     Indication: Product used for unknown indication
     Route: 048
     Dates: start: 20231123, end: 20231202
  2. ORSERDU [Suspect]
     Active Substance: ELACESTRANT
     Dosage: 258MG ONCE DAILY
     Route: 048
     Dates: start: 20231208

REACTIONS (6)
  - Product dose omission issue [Unknown]
  - Feeling abnormal [Unknown]
  - Illness [Unknown]
  - Nausea [Recovering/Resolving]
  - Dizziness [Recovering/Resolving]
  - Abdominal pain upper [Recovering/Resolving]
